FAERS Safety Report 9267569 (Version 2)
Quarter: 2013Q2

REPORT INFORMATION
  Report Type: Spontaneous
  Country: ES (occurrence: ES)
  Receive Date: 20130502
  Receipt Date: 20130510
  Transmission Date: 20140414
  Serious: Yes (Other)
  Sender: FDA-Public Use
  Company Number: ES-GLAXOSMITHKLINE-B0889076A

PATIENT
  Age: 49 Year
  Sex: Male

DRUGS (4)
  1. VOTRIENT [Suspect]
     Indication: PRODUCT USED FOR UNKNOWN INDICATION
     Dosage: 800MG PER DAY
     Route: 048
     Dates: start: 201109, end: 20130502
  2. LOSARTAN [Concomitant]
  3. RAMIPRIL [Concomitant]
  4. FENOFIBRATE [Concomitant]

REACTIONS (2)
  - Osteonecrosis [Not Recovered/Not Resolved]
  - Pain in extremity [Unknown]
